FAERS Safety Report 5829984-1 (Version None)
Quarter: 2008Q3

REPORT INFORMATION
  Report Type: 
  Country: None (occurrence: None)
  Receive Date: 20080801
  Receipt Date: 20080721
  Transmission Date: 20090109
  Serious: Yes (Other)
  Sender: FDA-Public Use
  Company Number: US-ROCHE-576863

PATIENT
  Age: 46 Year
  Sex: Female

DRUGS (1)
  1. BONIVA [Suspect]
     Indication: DRUG USE FOR UNKNOWN INDICATION
     Route: 065
     Dates: start: 20070101

REACTIONS (4)
  - ENDODONTIC PROCEDURE [None]
  - GINGIVAL INFECTION [None]
  - OSTEONECROSIS [None]
  - SWELLING FACE [None]
